FAERS Safety Report 8339991 (Version 3)
Quarter: 2014Q4

REPORT INFORMATION
  Report Type: Spontaneous
  Country: US (occurrence: US)
  Receive Date: 20120117
  Receipt Date: 20141105
  Transmission Date: 20150529
  Serious: Yes (Other)
  Sender: FDA-Public Use
  Company Number: US-ASTRAZENECA-2012SE01140

PATIENT
  Age: 67 Year
  Sex: Female

DRUGS (59)
  1. MORPHINE (NON AZ DRUG) [Suspect]
     Active Substance: MORPHINE
     Route: 065
  2. COREG [Concomitant]
     Active Substance: CARVEDILOL
     Indication: HEART RATE ABNORMAL
     Dates: start: 200907
  3. IPRATROPIUM [Concomitant]
     Active Substance: IPRATROPIUM
     Indication: CHRONIC OBSTRUCTIVE PULMONARY DISEASE
     Dosage: NEBULIZER 3-4 DAILY
     Route: 055
  4. GLYBURIDE. [Concomitant]
     Active Substance: GLYBURIDE
     Indication: DIABETES MELLITUS
     Dates: start: 200906
  5. SYNTHROID [Concomitant]
     Active Substance: LEVOTHYROXINE SODIUM
     Indication: HYPOTHYROIDISM
     Dates: start: 200906
  6. TYLENOL [Concomitant]
     Active Substance: ACETAMINOPHEN
     Indication: ARTHRALGIA
     Dosage: TWO TABLETS THREE TIMES A DAY AS NEEDED
  7. FLEXERIL [Concomitant]
     Active Substance: CYCLOBENZAPRINE HYDROCHLORIDE
     Indication: MUSCLE SPASMS
     Dosage: ONE TABLET THREE TIMES A DAY AS NEEDED
     Dates: start: 200905
  8. CALCITROL [Concomitant]
     Active Substance: CALCITRIOL
     Indication: PARATHYROID DISORDER
     Dates: start: 2010
  9. POTASSIUM [Concomitant]
     Active Substance: POTASSIUM
     Dates: start: 201009, end: 201011
  10. ASPIRIN. [Concomitant]
     Active Substance: ASPIRIN
     Indication: CARDIAC DISORDER
  11. OXYGEN. [Concomitant]
     Active Substance: OXYGEN
     Indication: CHRONIC OBSTRUCTIVE PULMONARY DISEASE
     Dosage: THREE LITRES CONSTANT
     Dates: start: 1999
  12. MUCINEX [Concomitant]
     Active Substance: GUAIFENESIN
     Indication: CHRONIC OBSTRUCTIVE PULMONARY DISEASE
  13. TYLENOL [Concomitant]
     Active Substance: ACETAMINOPHEN
     Indication: MYALGIA
     Dosage: TWO TABLETS THREE TIMES A DAY AS NEEDED
  14. MAXAIR [Concomitant]
     Active Substance: PIRBUTEROL ACETATE
     Indication: CHRONIC OBSTRUCTIVE PULMONARY DISEASE
     Dosage: TWO PUFFS FOUR TIMES DAILY AS NEEDED
     Dates: start: 200102
  15. LIPITOR [Concomitant]
     Active Substance: ATORVASTATIN CALCIUM
     Indication: BLOOD CHOLESTEROL ABNORMAL
     Dosage: FOUR TIMES PER WEEK
     Dates: start: 200906
  16. IRON [Concomitant]
     Active Substance: IRON
     Indication: ANAEMIA
     Dates: start: 201005
  17. VITAMIN C [Concomitant]
     Active Substance: ASCORBIC ACID
     Indication: ANAEMIA
  18. ZYLOPRIM [Concomitant]
     Active Substance: ALLOPURINOL
     Indication: GOUT
     Dates: start: 201004
  19. ZYLOPRIM [Concomitant]
     Active Substance: ALLOPURINOL
     Indication: GOUT
  20. FLEXERIL [Concomitant]
     Active Substance: CYCLOBENZAPRINE HYDROCHLORIDE
     Indication: MYALGIA
     Dosage: ONE TABLET DAILY AS NEEDED
  21. CALCITROL [Concomitant]
     Active Substance: CALCITRIOL
     Indication: PARATHYROID DISORDER
  22. FOLIC ACID. [Concomitant]
     Active Substance: FOLIC ACID
     Indication: CUSHING^S SYNDROME
     Dates: start: 200907
  23. DIAMOX SEQUELS [Concomitant]
     Active Substance: ACETAZOLAMIDE
     Indication: HEART RATE ABNORMAL
     Dosage: 250 MGS AS DIRECTED
  24. PREDNISONE. [Concomitant]
     Active Substance: PREDNISONE
     Indication: NECROTISING SCLERITIS
  25. PULMICORT TURBUHALER [Suspect]
     Active Substance: BUDESONIDE
     Indication: CHRONIC OBSTRUCTIVE PULMONARY DISEASE
     Dosage: 0.5 MG TWICE DAILY
     Route: 055
  26. PROZAC [Concomitant]
     Active Substance: FLUOXETINE HYDROCHLORIDE
     Indication: DEPRESSION
     Dates: start: 200906
  27. XANAX [Concomitant]
     Active Substance: ALPRAZOLAM
     Indication: INSOMNIA
     Dates: start: 200305
  28. TYLENOL [Concomitant]
     Active Substance: ACETAMINOPHEN
     Indication: MUSCLE SPASMS
     Dosage: TWO TABLETS THREE TIMES A DAY AS NEEDED
  29. DOXYCYCLINE. [Concomitant]
     Active Substance: DOXYCYCLINE
     Indication: BRONCHITIS CHRONIC
     Dosage: ONE TABLET TWICE DAILY AS NEEDED
     Dates: start: 2007
  30. COLCHICINE. [Concomitant]
     Active Substance: COLCHICINE
     Indication: GOUT
     Dates: start: 200910
  31. LIDODERM [Concomitant]
     Active Substance: LIDOCAINE
     Indication: MUSCLE SPASMS
     Dosage: ONE PATCH FOR TWELVE HOURS AS NEEDED
     Dates: start: 200404
  32. ATROVENT [Concomitant]
     Active Substance: IPRATROPIUM BROMIDE
     Indication: CHRONIC OBSTRUCTIVE PULMONARY DISEASE
     Dosage: ONE VIAL 3 TIMES DAILY
  33. ADVAIR DISKUS [Concomitant]
     Active Substance: FLUTICASONE PROPIONATE\SALMETEROL XINAFOATE
     Indication: CHRONIC OBSTRUCTIVE PULMONARY DISEASE
     Dosage: 500/50 ONE PUFF TWICE DAILY
     Dates: start: 200707
  34. CALCIUM VITAMIN D [Concomitant]
     Active Substance: CALCIUM\VITAMIN D
     Indication: OSTEOPOROSIS
     Dosage: 600 MG/200 IU, 1 TABLET TWICE DAILY
     Dates: start: 199801
  35. CALCIUM VITAMIN D [Concomitant]
     Active Substance: CALCIUM\VITAMIN D
     Indication: OSTEOPOROSIS
     Dosage: 650 MG, 1 TABLET TWICE DAILY
     Dates: start: 199801
  36. XANAX [Concomitant]
     Active Substance: ALPRAZOLAM
     Indication: ANXIETY
     Dates: start: 200305
  37. XANAX [Concomitant]
     Active Substance: ALPRAZOLAM
     Indication: INSOMNIA
  38. XANAX [Concomitant]
     Active Substance: ALPRAZOLAM
     Indication: ANXIETY
  39. ZYRTEC [Concomitant]
     Active Substance: CETIRIZINE HYDROCHLORIDE
     Indication: MULTIPLE ALLERGIES
  40. TIMOLOL [Concomitant]
     Active Substance: TIMOLOL
     Indication: NECROTISING SCLERITIS
  41. CATAPRES [Concomitant]
     Active Substance: CLONIDINE HYDROCHLORIDE
     Indication: BLOOD PRESSURE ABNORMAL
     Dates: start: 201004
  42. CATAPRES [Concomitant]
     Active Substance: CLONIDINE HYDROCHLORIDE
     Indication: BLOOD PRESSURE ABNORMAL
  43. PROZAC [Concomitant]
     Active Substance: FLUOXETINE HYDROCHLORIDE
     Indication: DEPRESSION
  44. FOLIC ACID. [Concomitant]
     Active Substance: FOLIC ACID
     Indication: HERNIA
     Dates: start: 200907
  45. FOLIC ACID. [Concomitant]
     Active Substance: FOLIC ACID
     Indication: NEPHROPATHY
     Dates: start: 200907
  46. LIDODERM [Concomitant]
     Active Substance: LIDOCAINE
     Indication: ARTHRALGIA
     Dosage: ONE PATCH FOR TWELVE HOURS AS NEEDED
     Dates: start: 200404
  47. LOTEMAX [Concomitant]
     Active Substance: LOTEPREDNOL ETABONATE
     Indication: NECROTISING SCLERITIS
     Dates: start: 200106
  48. LASIX [Concomitant]
     Active Substance: FUROSEMIDE
     Indication: OEDEMA
     Dates: start: 200806
  49. FLEXERIL [Concomitant]
     Active Substance: CYCLOBENZAPRINE HYDROCHLORIDE
     Indication: MYALGIA
     Dosage: ONE TABLET THREE TIMES A DAY AS NEEDED
     Dates: start: 200905
  50. FLEXERIL [Concomitant]
     Active Substance: CYCLOBENZAPRINE HYDROCHLORIDE
     Indication: MUSCLE SPASMS
     Dosage: ONE TABLET DAILY AS NEEDED
  51. METALAZONE [Concomitant]
     Indication: OEDEMA
     Dosage: AS DIRECTED FOR FLARE UP
  52. PERFOROMIST [Concomitant]
     Active Substance: FORMOTEROL FUMARATE DIHYDRATE
     Indication: CHRONIC OBSTRUCTIVE PULMONARY DISEASE
     Dosage: ONE VIAL 2 TIMES DAILY
  53. NEXIUM [Suspect]
     Active Substance: ESOMEPRAZOLE MAGNESIUM
     Indication: GASTROOESOPHAGEAL REFLUX DISEASE
     Route: 048
     Dates: start: 200306
  54. COREG [Concomitant]
     Active Substance: CARVEDILOL
     Indication: HEART RATE ABNORMAL
  55. FLEXERIL [Concomitant]
     Active Substance: CYCLOBENZAPRINE HYDROCHLORIDE
     Indication: ARTHRALGIA
     Dosage: ONE TABLET THREE TIMES A DAY AS NEEDED
     Dates: start: 200905
  56. FLEXERIL [Concomitant]
     Active Substance: CYCLOBENZAPRINE HYDROCHLORIDE
     Indication: ARTHRALGIA
     Dosage: ONE TABLET DAILY AS NEEDED
  57. COLACE [Concomitant]
     Active Substance: DOCUSATE SODIUM
     Indication: CONSTIPATION
     Dates: start: 201006
  58. LIDODERM [Concomitant]
     Active Substance: LIDOCAINE
     Indication: MYALGIA
     Dosage: ONE PATCH FOR TWELVE HOURS AS NEEDED
     Dates: start: 200404
  59. NORVASC [Concomitant]
     Active Substance: AMLODIPINE BESYLATE
     Indication: BLOOD PRESSURE ABNORMAL

REACTIONS (30)
  - Anaemia [Unknown]
  - Hypothyroidism [Unknown]
  - Multiple allergies [Unknown]
  - Asthma [Unknown]
  - Product use issue [Unknown]
  - Blood cholesterol abnormal [Unknown]
  - Blood potassium abnormal [Unknown]
  - Gastrooesophageal reflux disease [Unknown]
  - Arthritis [Unknown]
  - Osteoporosis [Unknown]
  - Adverse event [Unknown]
  - Oedema [Unknown]
  - Heart rate abnormal [Unknown]
  - Parathyroid disorder [Unknown]
  - Hernia [Unknown]
  - Constipation [Unknown]
  - Depression [Unknown]
  - Renal failure [Unknown]
  - Hypertension [Unknown]
  - Arthralgia [Unknown]
  - Cushing^s syndrome [Unknown]
  - Chronic obstructive pulmonary disease [Unknown]
  - Muscle spasms [Unknown]
  - Anxiety [Unknown]
  - Drug hypersensitivity [Unknown]
  - Insomnia [Unknown]
  - Diabetes mellitus [Unknown]
  - Gout [Unknown]
  - Bronchitis [Unknown]
  - Myalgia [Unknown]
